FAERS Safety Report 4894337-X (Version None)
Quarter: 2006Q1

REPORT INFORMATION
  Report Type: 
  Country: None (occurrence: None)
  Receive Date: 20060127
  Receipt Date: 20051206
  Transmission Date: 20060701
  Serious: Yes (Hospitalization, Other)
  Sender: FDA-Public Use
  Company Number: PHRM2005FR03170

PATIENT
  Age: 53 Year
  Sex: Male

DRUGS (2)
  1. CLASTOBAN [Suspect]
     Indication: METASTASES TO BONE
     Dosage: 400 MG, BID
     Route: 048
     Dates: start: 20050515
  2. ZOMETA [Suspect]
     Indication: METASTASES TO BONE
     Dosage: 4 MG, QMO
     Route: 042
     Dates: start: 20031015, end: 20050515

REACTIONS (7)
  - ACTINOMYCOSIS [None]
  - OSTEITIS [None]
  - OSTEOLYSIS [None]
  - OSTEONECROSIS [None]
  - SEPSIS [None]
  - SEQUESTRECTOMY [None]
  - TOOTH EXTRACTION [None]
